FAERS Safety Report 22182524 (Version 3)
Quarter: 2023Q2

REPORT INFORMATION
  Report Type: Report from Study
  Country: US (occurrence: US)
  Receive Date: 20230406
  Receipt Date: 20230525
  Transmission Date: 20230722
  Serious: Yes (Other)
  Sender: FDA-Public Use
  Company Number: US-002147023-NVSC2023US075142

PATIENT
  Age: 62 Year
  Sex: Female
  Weight: 90.3 kg

DRUGS (1)
  1. ENTRESTO [Suspect]
     Active Substance: SACUBITRIL\VALSARTAN
     Indication: Left ventricular failure
     Dosage: 1 DOSAGE FORM, BID
     Route: 048
     Dates: start: 20230224

REACTIONS (4)
  - Gastroenteritis viral [Recovered/Resolved]
  - Dehydration [Recovering/Resolving]
  - Blood electrolytes decreased [Recovering/Resolving]
  - Herpes zoster [Recovered/Resolved]

NARRATIVE: CASE EVENT DATE: 20230306
